FAERS Safety Report 5402426-6 (Version None)
Quarter: 2007Q3

REPORT INFORMATION
  Report Type: 
  Country: None (occurrence: None)
  Receive Date: 20070801
  Receipt Date: 20070607
  Transmission Date: 20080115
  Serious: Yes (Death, Other)
  Sender: FDA-Public Use
  Company Number: US-PURDUE-USA_2007_0028022

PATIENT
  Age: 76 Year
  Sex: Male

DRUGS (2)
  1. OXYCONTIN [Suspect]
     Indication: PAIN
     Dosage: 20 MG, Q12H
     Dates: start: 20010606
  2. METHANOL [Suspect]
     Indication: DRUG USE FOR UNKNOWN INDICATION

REACTIONS (7)
  - COMPLETED SUICIDE [None]
  - DEPRESSION SUICIDAL [None]
  - DRUG DEPENDENCE [None]
  - DRUG DOSE OMISSION [None]
  - FAECAL INCONTINENCE [None]
  - GUN SHOT WOUND [None]
  - PAIN [None]
